FAERS Safety Report 4935386-2 (Version None)
Quarter: 2006Q1

REPORT INFORMATION
  Report Type: 
  Country: None (occurrence: None)
  Receive Date: 20060307
  Receipt Date: 20050726
  Transmission Date: 20060701
  Serious: No
  Sender: FDA-Public Use
  Company Number: US-GLAXOSMITHKLINE-A0567731A

PATIENT
  Age: 34 Year
  Sex: Female

DRUGS (3)
  1. REQUIP [Suspect]
     Indication: RESTLESS LEGS SYNDROME
     Dosage: 1MG PER DAY
     Route: 048
     Dates: start: 20050716, end: 20050726
  2. LEXAPRO [Concomitant]
  3. WELLBUTRIN [Concomitant]

REACTIONS (2)
  - FATIGUE [None]
  - NAUSEA [None]
